FAERS Safety Report 9531981 (Version 1)
Quarter: 2013Q3

REPORT INFORMATION
  Report Type: Spontaneous
  Country: US (occurrence: None)
  Receive Date: 20130917
  Receipt Date: 20130917
  Transmission Date: 20140515
  Serious: Yes (Other)
  Sender: FDA-Public Use
  Company Number: None

PATIENT
  Age: 67 Year
  Sex: Male

DRUGS (7)
  1. BARACLUDE [Suspect]
     Indication: HEPATITIS B
     Route: 048
     Dates: start: 20130329
  2. LIPITOR [Concomitant]
  3. POTASSIUM [Concomitant]
  4. METOLAZONE [Concomitant]
  5. FISH OIL [Concomitant]
  6. RAPAFLO [Concomitant]
  7. VALACYCLOVIR [Concomitant]

REACTIONS (1)
  - Skin lesion [None]
